FAERS Safety Report 20814512 (Version 1)
Quarter: 2022Q2

REPORT INFORMATION
  Report Type: Spontaneous
  Country: US (occurrence: None)
  Receive Date: 20220510
  Receipt Date: 20220510
  Transmission Date: 20220720
  Serious: Yes (Other)
  Sender: FDA-Public Use
  Company Number: None

PATIENT
  Age: 55 Year
  Sex: Male
  Weight: 106.59 kg

DRUGS (1)
  1. PAXLOVID [Suspect]
     Active Substance: NIRMATRELVIR\RITONAVIR
     Indication: COVID-19
     Dosage: OTHER QUANTITY : 3 UNK;?FREQUENCY : TWICE A DAY;?
     Route: 048

REACTIONS (3)
  - Lip swelling [None]
  - Eye swelling [None]
  - Rash vesicular [None]

NARRATIVE: CASE EVENT DATE: 20220510
